FAERS Safety Report 15508610 (Version 3)
Quarter: 2018Q4

REPORT INFORMATION
  Report Type: Spontaneous
  Country: JP (occurrence: JP)
  Receive Date: 20181016
  Receipt Date: 20181119
  Transmission Date: 20190205
  Serious: Yes (Death, Other)
  Sender: FDA-Public Use
  Company Number: JP-CELGENEUS-JPN-20180905022

PATIENT
  Age: 77 Year
  Sex: Male
  Weight: 46 kg

DRUGS (3)
  1. ABRAXANE [Suspect]
     Active Substance: PACLITAXEL
     Indication: GASTRIC CANCER
     Dosage: 100 MILLIGRAM
     Route: 041
     Dates: start: 20180711, end: 20180822
  2. RAMUCIRUMAB [Concomitant]
     Active Substance: RAMUCIRUMAB
     Indication: GASTRIC CANCER
     Dosage: 400 MILLIGRAM
     Route: 041
     Dates: start: 20180711, end: 20180822
  3. GOSERELIN ACETATE [Concomitant]
     Active Substance: GOSERELIN ACETATE
     Indication: PRODUCT USED FOR UNKNOWN INDICATION
     Dosage: 10.8 MILLIGRAM
     Route: 058
     Dates: start: 20170104, end: 20180816

REACTIONS (1)
  - Interstitial lung disease [Fatal]

NARRATIVE: CASE EVENT DATE: 20180903
